FAERS Safety Report 23911269 (Version 2)
Quarter: 2024Q2

REPORT INFORMATION
  Report Type: Spontaneous
  Country: US (occurrence: US)
  Receive Date: 20240528
  Receipt Date: 20240606
  Transmission Date: 20240715
  Serious: Yes (Hospitalization, Other)
  Sender: FDA-Public Use
  Company Number: US-GILEAD-2024-0674460

PATIENT
  Age: 69 Year
  Sex: Female

DRUGS (1)
  1. YESCARTA [Suspect]
     Active Substance: AXICABTAGENE CILOLEUCEL
     Indication: Diffuse large B-cell lymphoma
     Dosage: 1 BAG FOR INFUSION
     Route: 042
     Dates: start: 20240521, end: 20240521

REACTIONS (3)
  - Immune effector cell-associated neurotoxicity syndrome [Not Recovered/Not Resolved]
  - Cytokine release syndrome [Recovered/Resolved]
  - Rash macular [Not Recovered/Not Resolved]

NARRATIVE: CASE EVENT DATE: 20240523
